FAERS Safety Report 20085372 (Version 6)
Quarter: 2022Q1

REPORT INFORMATION
  Report Type: Spontaneous
  Country: HU (occurrence: HU)
  Receive Date: 20211118
  Receipt Date: 20220127
  Transmission Date: 20220424
  Serious: Yes (Life-Threatening, Hospitalization, Other)
  Sender: FDA-Public Use
  Company Number: HU-NOVARTISPH-NVSC2021HU254658

PATIENT
  Age: 10 Month
  Sex: Male

DRUGS (71)
  1. ZOLGENSMA [Suspect]
     Active Substance: ONASEMNOGENE ABEPARVOVEC-XIOI
     Indication: Spinal muscular atrophy
     Dosage: 41.3 ML / 8.3X10^14 (3X8.3 ML)
     Route: 042
     Dates: start: 20211103, end: 20211103
  2. ZOLGENSMA [Suspect]
     Active Substance: ONASEMNOGENE ABEPARVOVEC-XIOI
     Dosage: 41.3 ML / 8.3X10^14 (3X8.3 ML)
     Route: 042
     Dates: start: 20211103, end: 20211103
  3. FENTANYL [Suspect]
     Active Substance: FENTANYL
     Indication: Product used for unknown indication
     Dosage: UNK
     Route: 042
  4. FAMOTIDINE [Concomitant]
     Active Substance: FAMOTIDINE
     Indication: Product used for unknown indication
     Dosage: 83.7 MG (2X1 IN THE MORNING AND EVENING)
     Route: 065
     Dates: start: 20211102
  5. FAMOTIDINE [Concomitant]
     Active Substance: FAMOTIDINE
     Dosage: UNK (SYRUP)
     Route: 065
  6. FAMOTIDINE [Concomitant]
     Active Substance: FAMOTIDINE
     Dosage: UNK (GASTROSTOMY TUBE)
     Route: 065
     Dates: start: 20220104
  7. FAMOTIDINE [Concomitant]
     Active Substance: FAMOTIDINE
     Dosage: 3.6 MG, BID (SUSPENSION)
     Route: 065
  8. FAMOTIDINE [Concomitant]
     Active Substance: FAMOTIDINE
     Dosage: 3 MG, BID (GASTROSTOMY TUBE) (SUSPENSION)
     Route: 065
  9. PREDNISOLONE [Concomitant]
     Active Substance: PREDNISOLONE
     Indication: Product used for unknown indication
     Dosage: 7.5 MG (2X1 IN THE MORNING AND EVENING)
     Route: 054
     Dates: start: 20211102
  10. PREDNISOLONE [Concomitant]
     Active Substance: PREDNISOLONE
     Dosage: 6 MG, QD
     Route: 065
  11. PREDNISOLONE [Concomitant]
     Active Substance: PREDNISOLONE
     Dosage: 2 MG, QD
     Route: 065
  12. PREDNISOLONE [Concomitant]
     Active Substance: PREDNISOLONE
     Dosage: 1 MG/KG
     Route: 054
     Dates: start: 20211102
  13. PREDNISOLONE [Concomitant]
     Active Substance: PREDNISOLONE
     Dosage: 1 MG/KG
     Route: 054
     Dates: start: 20211205, end: 20211213
  14. PREDNISOLONE [Concomitant]
     Active Substance: PREDNISOLONE
     Dosage: 0.85 MG/KG
     Route: 054
     Dates: start: 20211214, end: 20211226
  15. PREDNISOLONE [Concomitant]
     Active Substance: PREDNISOLONE
     Dosage: 0.5 MG/KG
     Route: 054
     Dates: start: 20211227, end: 20220104
  16. PREDNISOLONE [Concomitant]
     Active Substance: PREDNISOLONE
     Dosage: 0.3 MG/KG
     Route: 054
     Dates: start: 20220105
  17. PREDNISOLONE [Concomitant]
     Active Substance: PREDNISOLONE
     Dosage: UNK (INJECTION)
     Route: 042
  18. PREDNISOLONE [Concomitant]
     Active Substance: PREDNISOLONE
     Dosage: UNK
     Route: 065
  19. SODIUM CHLORIDE [Concomitant]
     Active Substance: SODIUM CHLORIDE
     Indication: Product used for unknown indication
     Dosage: 20 ML
     Route: 065
     Dates: start: 20211103
  20. ISOLYTE [Concomitant]
     Indication: Product used for unknown indication
     Dosage: UNK
     Route: 042
  21. VANCOMYCIN [Concomitant]
     Active Substance: VANCOMYCIN
     Indication: Product used for unknown indication
     Dosage: UNK
     Route: 065
  22. MEROPENEM [Concomitant]
     Active Substance: MEROPENEM
     Indication: Product used for unknown indication
     Dosage: UNK
     Route: 042
  23. ROCEPHIN [Concomitant]
     Active Substance: CEFTRIAXONE SODIUM
     Indication: Product used for unknown indication
     Dosage: UNK
     Route: 042
  24. NYSTATIN [Concomitant]
     Active Substance: NYSTATIN
     Indication: Product used for unknown indication
     Dosage: UNK (POWDER)
     Route: 065
  25. DORMICUM [Concomitant]
     Indication: Product used for unknown indication
     Dosage: UNK
     Route: 042
  26. DEXMEDETOMIDINE HYDROCHLORIDE [Concomitant]
     Active Substance: DEXMEDETOMIDINE HYDROCHLORIDE
     Indication: Product used for unknown indication
     Dosage: UNK
     Route: 042
  27. CLONIDINE [Concomitant]
     Active Substance: CLONIDINE
     Indication: Product used for unknown indication
     Dosage: UNK
     Route: 042
  28. PROPOFOL [Concomitant]
     Active Substance: PROPOFOL
     Indication: Product used for unknown indication
     Dosage: UNK
     Route: 042
  29. METHADONE HYDROCHLORIDE [Concomitant]
     Active Substance: METHADONE HYDROCHLORIDE
     Indication: Product used for unknown indication
     Dosage: UNK
     Route: 065
  30. DEXAMETHASONE [Concomitant]
     Active Substance: DEXAMETHASONE
     Indication: Product used for unknown indication
     Dosage: UNK
     Route: 065
  31. KCL [Concomitant]
     Active Substance: POTASSIUM CHLORIDE
     Indication: Product used for unknown indication
     Dosage: 7.45 % (INJECTION)
     Route: 042
  32. KCL [Concomitant]
     Active Substance: POTASSIUM CHLORIDE
     Dosage: UNK (POWDER)
     Route: 065
  33. PENTOXIFYLLINE [Concomitant]
     Active Substance: PENTOXIFYLLINE
     Indication: Product used for unknown indication
     Dosage: UNK
     Route: 042
  34. VITAMIN C [Concomitant]
     Active Substance: ASCORBIC ACID
     Indication: Peritoneal permeability decreased
     Route: 042
  35. HUMAN-ALBUMIN [Concomitant]
     Indication: Product used for unknown indication
     Dosage: UNK
     Route: 042
  36. VIGANTOL [Concomitant]
     Indication: Product used for unknown indication
     Dosage: 1 DRP, QD
     Route: 065
  37. VIGANTOL [Concomitant]
     Dosage: 3 DRP, QD (VIA GASTROSTOMY TUBE)
     Route: 065
  38. VIGANTOL [Concomitant]
     Dosage: UNK (VIA GASTROSTOMY TUBE) (SOLUTION)
     Route: 065
     Dates: start: 20220104
  39. MALTOFER [Concomitant]
     Indication: Product used for unknown indication
     Dosage: UNK (DROPS)
     Route: 065
  40. FOLIC ACID [Concomitant]
     Active Substance: FOLIC ACID
     Indication: Product used for unknown indication
     Dosage: UNK (POWDER)
     Route: 065
  41. LACTOBACILLUS REUTERI [Concomitant]
     Active Substance: LACTOBACILLUS REUTERI
     Indication: Product used for unknown indication
     Dosage: UNK
     Route: 065
  42. ENTEROL [Concomitant]
     Indication: Product used for unknown indication
     Dosage: UNK (POWDER)
     Route: 065
  43. ENTEROL [Concomitant]
     Dosage: UNK, BID (1/2 PACK)
     Route: 065
  44. NEOGRANORMON [Concomitant]
     Indication: Product used for unknown indication
     Dosage: UNK (LOCALLY TO THE GLUTEAL REGION)
     Route: 065
  45. EPHEDRINE HYDROCHLORIDE [Concomitant]
     Active Substance: EPHEDRINE HYDROCHLORIDE
     Indication: Product used for unknown indication
     Dosage: UNK
     Route: 065
  46. FLUIMUCIL [Concomitant]
     Active Substance: ACETYLCYSTEINE
     Indication: Product used for unknown indication
     Dosage: UNK (SOLUTION) (IN STEAM)
     Route: 065
  47. PANTOPRAZOLE [Concomitant]
     Active Substance: PANTOPRAZOLE
     Indication: Product used for unknown indication
     Dosage: UNK (POWDER)
     Route: 065
  48. PANTOPRAZOLE [Concomitant]
     Active Substance: PANTOPRAZOLE
     Dosage: UNK (POWDER) (GASTROSTOMY TUBE)
     Route: 065
     Dates: start: 20220104
  49. DENTINOX [Concomitant]
     Indication: Product used for unknown indication
     Dosage: UNK (AS NEEDED)
     Route: 065
  50. IBUPROFEN [Concomitant]
     Active Substance: IBUPROFEN
     Indication: Product used for unknown indication
     Dosage: UNK
     Route: 065
  51. ALGOPYRIN [Concomitant]
     Indication: Product used for unknown indication
     Dosage: UNK
     Route: 042
  52. ACETAMINOPHEN [Concomitant]
     Active Substance: ACETAMINOPHEN
     Indication: Product used for unknown indication
     Dosage: UNK
     Route: 065
  53. GLYCOPYRROLATE [Concomitant]
     Active Substance: GLYCOPYRROLATE
     Indication: Product used for unknown indication
     Dosage: UNK, QD (0.001-0.004 MG / KG /) POWDER
     Route: 065
  54. PANACTIV [Concomitant]
     Indication: Product used for unknown indication
     Dosage: UNK
     Route: 065
  55. CAPTOPRIL [Concomitant]
     Active Substance: CAPTOPRIL
     Indication: Hypertension
     Dosage: UNK (POWDER)
     Route: 065
  56. CAPTOPRIL [Concomitant]
     Active Substance: CAPTOPRIL
     Dosage: UNK (POWDER) (GASTROSTOMY TUBE)
     Route: 065
     Dates: start: 20220104
  57. CAPTOPRIL [Concomitant]
     Active Substance: CAPTOPRIL
     Dosage: 2 MG, TID (GASTROSTOMY TUBE) (POWDER)
     Route: 065
  58. SOLU-MEDROL [Concomitant]
     Active Substance: METHYLPREDNISOLONE SODIUM SUCCINATE
     Indication: Product used for unknown indication
     Dosage: 0.8 MG/KG
     Route: 042
     Dates: start: 20211107, end: 20211111
  59. SOLU-MEDROL [Concomitant]
     Active Substance: METHYLPREDNISOLONE SODIUM SUCCINATE
     Dosage: 2.8 MG/KG
     Route: 042
     Dates: start: 20211112, end: 20211112
  60. SOLU-MEDROL [Concomitant]
     Active Substance: METHYLPREDNISOLONE SODIUM SUCCINATE
     Dosage: 4 MG/KG
     Route: 042
     Dates: start: 20211113, end: 20211118
  61. SOLU-MEDROL [Concomitant]
     Active Substance: METHYLPREDNISOLONE SODIUM SUCCINATE
     Dosage: 3.4 MG/KG
     Route: 042
     Dates: start: 20211119, end: 20211119
  62. SOLU-MEDROL [Concomitant]
     Active Substance: METHYLPREDNISOLONE SODIUM SUCCINATE
     Dosage: 2.7 MG/KG
     Route: 042
     Dates: start: 20211120, end: 20211120
  63. SOLU-MEDROL [Concomitant]
     Active Substance: METHYLPREDNISOLONE SODIUM SUCCINATE
     Dosage: 2.7 MG/KG
     Route: 042
     Dates: start: 20211121, end: 20211121
  64. SOLU-MEDROL [Concomitant]
     Active Substance: METHYLPREDNISOLONE SODIUM SUCCINATE
     Dosage: 2.4 MG/KG
     Route: 042
     Dates: start: 20211222, end: 20211222
  65. SOLU-MEDROL [Concomitant]
     Active Substance: METHYLPREDNISOLONE SODIUM SUCCINATE
     Dosage: 2.1 MG/KG
     Route: 042
     Dates: start: 20211123, end: 20211124
  66. SOLU-MEDROL [Concomitant]
     Active Substance: METHYLPREDNISOLONE SODIUM SUCCINATE
     Dosage: 1.9 MG/KG
     Route: 042
     Dates: start: 20211125, end: 20211126
  67. SOLU-MEDROL [Concomitant]
     Active Substance: METHYLPREDNISOLONE SODIUM SUCCINATE
     Dosage: 1.6 MG/KG
     Route: 042
     Dates: start: 20211127, end: 20211128
  68. SOLU-MEDROL [Concomitant]
     Active Substance: METHYLPREDNISOLONE SODIUM SUCCINATE
     Dosage: 1.4 MG/KG
     Route: 042
     Dates: start: 20211129, end: 20211202
  69. SOLU-MEDROL [Concomitant]
     Active Substance: METHYLPREDNISOLONE SODIUM SUCCINATE
     Dosage: 1 MG/KG
     Route: 042
     Dates: start: 20211203, end: 20211204
  70. IMMUNOGLOBULIN [Concomitant]
     Indication: Sepsis
     Dosage: UNK
     Route: 042
  71. SULFAMETHOXAZOLE\TRIMETHOPRIM [Concomitant]
     Active Substance: SULFAMETHOXAZOLE\TRIMETHOPRIM
     Indication: Product used for unknown indication
     Route: 065

REACTIONS (36)
  - Oxygen saturation abnormal [Unknown]
  - Pneumonia [Unknown]
  - Pyrexia [Recovered/Resolved]
  - Vomiting [Unknown]
  - Cough [Recovered/Resolved]
  - Tachycardia [Unknown]
  - Clostridium difficile colitis [Unknown]
  - Faeces discoloured [Unknown]
  - Vomiting [Recovered/Resolved]
  - Diarrhoea [Recovered/Resolved]
  - Thrombotic microangiopathy [Unknown]
  - Renal impairment [Unknown]
  - Red blood cells urine [Unknown]
  - Protein urine [Unknown]
  - Fatigue [Recovered/Resolved]
  - Pallor [Unknown]
  - Oedema [Recovered/Resolved]
  - Anaemia [Unknown]
  - Sepsis [Unknown]
  - Sepsis [Recovered/Resolved]
  - Lethargy [Recovered/Resolved]
  - Pyrexia [Recovered/Resolved]
  - White blood cell count increased [Unknown]
  - Respiratory disorder [Not Recovered/Not Resolved]
  - Hepatomegaly [Unknown]
  - Abdominal distension [Recovering/Resolving]
  - General physical health deterioration [Unknown]
  - Hepatic enzyme increased [Unknown]
  - Somnolence [Unknown]
  - Haptoglobin increased [Unknown]
  - Increased bronchial secretion [Unknown]
  - Salivary hypersecretion [Not Recovered/Not Resolved]
  - Platelet count increased [Unknown]
  - Hypertension [Unknown]
  - Hypercalciuria [Unknown]
  - Proteinuria [Unknown]

NARRATIVE: CASE EVENT DATE: 20211101
